FAERS Safety Report 13349799 (Version 2)
Quarter: 2017Q2

REPORT INFORMATION
  Report Type: Report from Study
  Country: GB (occurrence: GB)
  Receive Date: 20170320
  Receipt Date: 20170414
  Transmission Date: 20170830
  Serious: Yes (Hospitalization, Other)
  Sender: FDA-Public Use
  Company Number: GB-TEVA-749106ACC

PATIENT
  Age: 31 Year
  Sex: Female
  Weight: 114.8 kg

DRUGS (1)
  1. COPAXONE [Suspect]
     Active Substance: GLATIRAMER ACETATE
     Indication: RELAPSING-REMITTING MULTIPLE SCLEROSIS
     Route: 058
     Dates: start: 20161202

REACTIONS (12)
  - Dyspnoea [Recovered/Resolved]
  - Hyperhidrosis [Recovered/Resolved]
  - Asthenia [Recovering/Resolving]
  - Malaise [Recovered/Resolved]
  - Swelling face [Recovered/Resolved]
  - Heart rate increased [Recovered/Resolved]
  - Speech disorder [Recovered/Resolved]
  - Injection site pain [Recovering/Resolving]
  - Haemorrhage [Recovering/Resolving]
  - Immediate post-injection reaction [Recovered/Resolved]
  - Peripheral swelling [Recovering/Resolving]
  - Swelling face [Recovering/Resolving]

NARRATIVE: CASE EVENT DATE: 20170308
